FAERS Safety Report 7324215-8 (Version None)
Quarter: 2011Q1

REPORT INFORMATION
  Report Type: 
  Country: None (occurrence: None)
  Receive Date: 20110202
  Receipt Date: 20101123
  Transmission Date: 20110831
  Serious: No
  Sender: FDA-Public Use
  Company Number: 2010-15363

PATIENT
  Age: 32 Year
  Sex: Female
  Weight: 58 kg

DRUGS (1)
  1. RAPAFLO [Suspect]
     Indication: NEPHROLITHIASIS
     Dosage: 1 TABLET, DAILY, ORAL
     Route: 048
     Dates: start: 20101111, end: 20101111

REACTIONS (1)
  - OEDEMA PERIPHERAL [None]
